FAERS Safety Report 8132162-7 (Version None)
Quarter: 2012Q1

REPORT INFORMATION
  Report Type: 
  Country: None (occurrence: None)
  Receive Date: 20120213
  Receipt Date: 20120131
  Transmission Date: 20120608
  Serious: Yes (Disabling)
  Sender: FDA-Public Use
  Company Number: FR-TEVA-301857ISR

PATIENT
  Sex: Male

DRUGS (4)
  1. AZILECT [Suspect]
     Dosage: 1 MILLIGRAM;
     Route: 048
     Dates: start: 20090624
  2. AZILECT [Suspect]
     Indication: PARKINSON'S DISEASE
     Dosage: 1 MILLIGRAM;
     Route: 048
     Dates: start: 20100501, end: 20100621
  3. AZILECT [Suspect]
     Dosage: 1 MILLIGRAM;
     Route: 048
     Dates: end: 20100519
  4. ACETAMINOPHEN AND TRAMADOL HCL [Concomitant]
     Indication: BACK PAIN

REACTIONS (2)
  - ON AND OFF PHENOMENON [None]
  - BACK PAIN [None]
